FAERS Safety Report 9302663 (Version 1)
Quarter: 2013Q2

REPORT INFORMATION
  Report Type: Spontaneous
  Country: US (occurrence: US)
  Receive Date: 20130522
  Receipt Date: 20130522
  Transmission Date: 20140414
  Serious: No
  Sender: FDA-Public Use
  Company Number: US-BAYER-2013-063378

PATIENT
  Age: 78 Year
  Sex: Male
  Weight: 90.7 kg

DRUGS (3)
  1. ALEVE GELCAPS [Suspect]
     Indication: ARTHRITIS
     Dosage: 2 DF, PRN
     Route: 048
     Dates: start: 2013
  2. TRAMADOL [Concomitant]
  3. TRAZODONE [Concomitant]

REACTIONS (2)
  - Constipation [None]
  - Abdominal discomfort [None]
